FAERS Safety Report 4749274-8 (Version None)
Quarter: 2005Q3

REPORT INFORMATION
  Report Type: 
  Country: None (occurrence: None)
  Receive Date: 20050815
  Receipt Date: 20050729
  Transmission Date: 20060218
  Serious: Yes (Other)
  Sender: FDA-Public Use
  Company Number: US145001

PATIENT

DRUGS (1)
  1. ENBREL [Suspect]
     Indication: DERMATITIS ATOPIC
     Dosage: 25 MG, 2 IN 1 WEEKS

REACTIONS (4)
  - DRUG EFFECT DECREASED [None]
  - PRURITUS [None]
  - STAPHYLOCOCCAL INFECTION [None]
  - SUPERINFECTION [None]
